FAERS Safety Report 19515172 (Version 1)
Quarter: 2021Q3

REPORT INFORMATION
  Report Type: Spontaneous
  Country: LK (occurrence: LK)
  Receive Date: 20210709
  Receipt Date: 20210709
  Transmission Date: 20211014
  Serious: Yes (Death, Life-Threatening, Hospitalization, Other)
  Sender: FDA-Public Use
  Company Number: LK-SA-2021SA215996

PATIENT
  Age: 56 Year
  Sex: Female

DRUGS (3)
  1. DOXORUBICIN [Concomitant]
     Active Substance: DOXORUBICIN
     Indication: INVASIVE BREAST CARCINOMA
  2. DOCETAXEL. [Suspect]
     Active Substance: DOCETAXEL
     Dosage: CUMULATIVE DOSE
  3. DOCETAXEL. [Suspect]
     Active Substance: DOCETAXEL
     Indication: INVASIVE BREAST CARCINOMA
     Dosage: 160 MG, Q3W
     Dates: start: 20200409, end: 20200610

REACTIONS (9)
  - Drug hypersensitivity [Fatal]
  - Pyrexia [Fatal]
  - Immunosuppression [Fatal]
  - Organising pneumonia [Fatal]
  - Cough [Fatal]
  - Lung consolidation [Fatal]
  - Pulmonary toxicity [Fatal]
  - Interstitial lung disease [Fatal]
  - Dyspnoea [Fatal]

NARRATIVE: CASE EVENT DATE: 20200709
